FAERS Safety Report 18323677 (Version 1)
Quarter: 2020Q3

REPORT INFORMATION
  Report Type: Spontaneous
  Country: ES (occurrence: ES)
  Receive Date: 20200928
  Receipt Date: 20200928
  Transmission Date: 20201103
  Serious: Yes (Death, Hospitalization, Other)
  Sender: FDA-Public Use
  Company Number: ES-009507513-2009ESP009335

PATIENT
  Age: 70 Year
  Sex: Male

DRUGS (8)
  1. PEMBROLIZUMAB. [Suspect]
     Active Substance: PEMBROLIZUMAB
     Dates: start: 20191025
  2. PEMETREXED DISODIUM [Suspect]
     Active Substance: PEMETREXED DISODIUM
     Dosage: SECOND
     Dates: start: 20191125
  3. DEXAMETHASONE. [Concomitant]
     Active Substance: DEXAMETHASONE
     Dosage: UNK
     Dates: start: 20191018, end: 20191105
  4. CISPLATIN. [Suspect]
     Active Substance: CISPLATIN
     Dosage: FIRST CYCLE
     Dates: start: 20191025
  5. PEMETREXED DISODIUM [Suspect]
     Active Substance: PEMETREXED DISODIUM
     Dosage: THIRD CYCLE
     Dates: start: 20191213
  6. CISPLATIN. [Suspect]
     Active Substance: CISPLATIN
     Dosage: THIRD CYCLE
     Dates: start: 20191213
  7. PEMETREXED DISODIUM [Suspect]
     Active Substance: PEMETREXED DISODIUM
     Dosage: FIRST CYCLE
     Dates: start: 20191025
  8. CISPLATIN. [Suspect]
     Active Substance: CISPLATIN
     Dosage: SECOND
     Dates: start: 20191105

REACTIONS (26)
  - Malignant neoplasm progression [Unknown]
  - Gamma-glutamyltransferase abnormal [Unknown]
  - Blood creatine phosphokinase abnormal [Unknown]
  - Bone marrow infiltration [Unknown]
  - SARS-CoV-2 antibody test positive [Unknown]
  - Blood calcium abnormal [Recovered/Resolved]
  - Pyrexia [Unknown]
  - C-reactive protein abnormal [Unknown]
  - Dizziness [Unknown]
  - Weight increased [Unknown]
  - Blood acid phosphatase abnormal [Unknown]
  - Death [Fatal]
  - Myelocytosis [Unknown]
  - Alanine aminotransferase abnormal [Unknown]
  - Blood glucose abnormal [Unknown]
  - Platelet count decreased [Recovered/Resolved]
  - Fibrin D dimer increased [Unknown]
  - Gait inability [Unknown]
  - Blood albumin abnormal [Unknown]
  - Therapeutic response changed [Unknown]
  - Platelet count decreased [Unknown]
  - Therapy partial responder [Unknown]
  - Haemoglobin abnormal [Unknown]
  - Procalcitonin abnormal [Unknown]
  - Blood lactate dehydrogenase increased [Unknown]
  - Pain [Unknown]

NARRATIVE: CASE EVENT DATE: 2019
